FAERS Safety Report 4562602-1 (Version None)
Quarter: 2005Q1

REPORT INFORMATION
  Report Type: 
  Country: None (occurrence: None)
  Receive Date: 20050127
  Receipt Date: 20050118
  Transmission Date: 20050727
  Serious: Yes (Hospitalization)
  Sender: FDA-Public Use
  Company Number: US-ROCHE-392939

PATIENT
  Age: 47 Year
  Sex: Female
  Weight: 70.8 kg

DRUGS (5)
  1. PEGASYS [Suspect]
     Indication: HEPATITIS C
     Route: 050
     Dates: start: 20041115, end: 20041231
  2. COPEGUS [Suspect]
     Indication: HEPATITIS C
     Route: 048
     Dates: start: 20041115, end: 20041231
  3. EFFEXOR [Concomitant]
     Indication: DEPRESSION
     Route: 048
  4. ATIVAN [Concomitant]
     Indication: SLEEP DISORDER
     Dosage: DOSE REGIMEN REPORTED AS 2 IN THE AM AND 2 IN THE PM.
     Route: 048
  5. UNSPECIFIED MEDICATION [Concomitant]
     Dosage: DRUG REPORTED AS UNSPECIFIED PILLS FOR DIABETES.
     Route: 048

REACTIONS (2)
  - CONVULSION [None]
  - MYOCARDIAL INFARCTION [None]
